FAERS Safety Report 8230028-5 (Version None)
Quarter: 2012Q1

REPORT INFORMATION
  Report Type: 
  Country: None (occurrence: None)
  Receive Date: 20120307
  Receipt Date: 20100603
  Transmission Date: 20120608
  Serious: Yes (Other)
  Sender: FDA-Public Use
  Company Number: PHHY2010US30008

PATIENT
  Age: 71 Year
  Sex: Male
  Weight: 105.6881 kg

DRUGS (2)
  1. AFINITOR [Suspect]
     Indication: RENAL CELL CARCINOMA
     Dosage: 10 MG DAILY, ORAL
     Route: 048
     Dates: start: 20100502
  2. AFINITOR [Suspect]
     Indication: RENAL CELL CARCINOMA
     Dosage: 10 MG DAILY, ORAL
     Route: 048
     Dates: start: 20100405, end: 20100502

REACTIONS (2)
  - DYSPNOEA [None]
  - PNEUMONITIS [None]
